FAERS Safety Report 4373321-9 (Version None)
Quarter: 2004Q2

REPORT INFORMATION
  Report Type: 
  Country: None (occurrence: None)
  Receive Date: 20040603
  Receipt Date: 20040521
  Transmission Date: 20050107
  Serious: Yes (Other)
  Sender: FDA-Public Use
  Company Number: 2004020392

PATIENT
  Age: 52 Year
  Sex: Female
  Weight: 65.7716 kg

DRUGS (6)
  1. NARDIL [Suspect]
     Indication: DEPRESSION
  2. SURMONTIL [Concomitant]
     Indication: ILL-DEFINED DISORDER
  3. PROCARDIA [Suspect]
     Indication: HYPERTENSION
     Dosage: 30 MG
     Dates: start: 20040401
  4. LITHIUM CARBONATE [Concomitant]
  5. LEVOTHYROXINE SODIUM [Concomitant]
  6. ALPRAZOLAM [Concomitant]

REACTIONS (15)
  - ANXIETY [None]
  - BLADDER DISORDER [None]
  - CRYING [None]
  - CYSTITIS [None]
  - DEPRESSION [None]
  - DRUG INTERACTION [None]
  - DYSURIA [None]
  - HEADACHE [None]
  - HYPERTENSION [None]
  - PALPITATIONS [None]
  - PANIC ATTACK [None]
  - SENSATION OF FOREIGN BODY [None]
  - TREATMENT NONCOMPLIANCE [None]
  - URINARY HESITATION [None]
  - URINARY RETENTION [None]
